FAERS Safety Report 9266008 (Version 1)
Quarter: 2013Q2

REPORT INFORMATION
  Report Type: Spontaneous
  Country: US (occurrence: US)
  Receive Date: 20130501
  Receipt Date: 20130501
  Transmission Date: 20140414
  Serious: No
  Sender: FDA-Public Use
  Company Number: US-009507513-1304USA014935

PATIENT
  Sex: Female

DRUGS (1)
  1. NUVARING [Suspect]
     Dosage: UNK
     Route: 067
     Dates: start: 2011

REACTIONS (5)
  - Unintended pregnancy [Unknown]
  - Metrorrhagia [Unknown]
  - Amenorrhoea [Unknown]
  - Discomfort [Unknown]
  - Abdominal distension [Unknown]
